FAERS Safety Report 5365145-0 (Version None)
Quarter: 2007Q2

REPORT INFORMATION
  Report Type: 
  Country: None (occurrence: None)
  Receive Date: 20070530
  Receipt Date: 20070123
  Transmission Date: 20071010
  Serious: No
  Sender: FDA-Public Use
  Company Number: 2007PV028924

PATIENT
  Age: 80 Year
  Sex: Male

DRUGS (1)
  1. BYETTA [Suspect]
     Indication: DRUG USE FOR UNKNOWN INDICATION
     Dosage: 5 MCG;SC
     Route: 058

REACTIONS (4)
  - BLOOD GLUCOSE FLUCTUATION [None]
  - INJECTION SITE PAIN [None]
  - NAUSEA [None]
  - SKIN NODULE [None]
